FAERS Safety Report 11563415 (Version 1)
Quarter: 2015Q3

REPORT INFORMATION
  Report Type: Spontaneous
  Country: US (occurrence: None)
  Receive Date: 20150928
  Receipt Date: 20150928
  Transmission Date: 20151125
  Serious: Yes (Hospitalization, Other)
  Sender: FDA-Public Use
  Company Number: US-MDT-ADR-2015-01856

PATIENT
  Age: 70 Year
  Sex: Male

DRUGS (2)
  1. DILAUDID [Suspect]
     Active Substance: HYDROMORPHONE HYDROCHLORIDE
     Dosage: .164 MG/DAY
  2. BACLOFEN INTRATHECAL 3200 MCG/ML [Suspect]
     Active Substance: BACLOFEN
     Indication: MUSCLE SPASTICITY
     Dosage: 639 MCG/DAY

REACTIONS (3)
  - Mental status changes [None]
  - Drug withdrawal syndrome [None]
  - Muscle rigidity [None]
